FAERS Safety Report 17507934 (Version 2)
Quarter: 2020Q1

REPORT INFORMATION
  Report Type: Spontaneous
  Country: JP (occurrence: JP)
  Receive Date: 20200305
  Receipt Date: 20200313
  Transmission Date: 20200409
  Serious: Yes (Other)
  Sender: FDA-Public Use
  Company Number: JP-MTPC-MTPC2020-0045898

PATIENT

DRUGS (2)
  1. RILUTEK [Concomitant]
     Active Substance: RILUZOLE
     Route: 065
  2. RADICUT BAG FOR I.V. INFUSION 30MG [Suspect]
     Active Substance: EDARAVONE
     Indication: AMYOTROPHIC LATERAL SCLEROSIS
     Dosage: 60 MILLIGRAM, QD
     Route: 041
     Dates: start: 20170901

REACTIONS (2)
  - Pancytopenia [Recovered/Resolved]
  - Anaemia [Recovered/Resolved]
